FAERS Safety Report 5389058-3 (Version None)
Quarter: 2007Q3

REPORT INFORMATION
  Report Type: 
  Country: None (occurrence: None)
  Receive Date: 20070717
  Receipt Date: 20070706
  Transmission Date: 20080115
  Serious: Yes (Death, Hospitalization)
  Sender: FDA-Public Use
  Company Number: US-JNJFOC-20070702416

PATIENT
  Age: 20 Year
  Sex: Female

DRUGS (3)
  1. DOXIL [Suspect]
     Indication: HODGKIN'S DISEASE
     Dosage: 5 CYCLES, ADMINISTERED ON DAYS 1 AND 8 EVERY 21 DAYS.
     Route: 042
  2. GEMCITABINE HCL [Suspect]
     Indication: HODGKIN'S DISEASE
     Dosage: 5 CYCLES, ADMINISTERED ON DAYS 1 AND 8 OF A 21 DAY CYCLE.
     Route: 065
  3. VINORELBINE [Suspect]
     Indication: HODGKIN'S DISEASE
     Dosage: 5 CYCLES, ADMINISTERED ON DAYS 1 AND 8 OF A 21 DAY CYCLE.
     Route: 065

REACTIONS (2)
  - ACUTE RESPIRATORY DISTRESS SYNDROME [None]
  - PULMONARY ALVEOLAR HAEMORRHAGE [None]
